FAERS Safety Report 6867470-0 (Version None)
Quarter: 2010Q3

REPORT INFORMATION
  Report Type: 
  Country: None (occurrence: None)
  Receive Date: 20100722
  Receipt Date: 20100719
  Transmission Date: 20110219
  Serious: Yes (Death, Hospitalization, Other)
  Sender: FDA-Public Use
  Company Number: PHHO2010US10584

PATIENT
  Sex: Male
  Weight: 53.061 kg

DRUGS (3)
  1. STI571/CGP57148B T35717+TAB [Suspect]
     Indication: NEOPLASM
     Dosage: 400 MG
     Route: 048
     Dates: start: 20100113, end: 20100629
  2. AVASTIN [Suspect]
     Indication: COLON CANCER METASTATIC
     Dosage: 5 MG/KG
     Route: 042
     Dates: start: 20100113, end: 20100629
  3. CYCLOPHOSPHAMIDE [Suspect]
     Indication: COLON CANCER METASTATIC
     Dosage: 50 MG QD
     Route: 048
     Dates: start: 20100113, end: 20100629

REACTIONS (11)
  - ABDOMINAL PAIN UPPER [None]
  - ASTHENIA [None]
  - CARDIO-RESPIRATORY ARREST [None]
  - DECREASED APPETITE [None]
  - FLANK PAIN [None]
  - HYPERBILIRUBINAEMIA [None]
  - HYPOPERFUSION [None]
  - NAUSEA [None]
  - SYNCOPE [None]
  - THROMBOSIS [None]
  - VOMITING [None]
